FAERS Safety Report 23700341 (Version 3)
Quarter: 2024Q3

REPORT INFORMATION
  Report Type: Spontaneous
  Country: US (occurrence: US)
  Receive Date: 20240403
  Receipt Date: 20240702
  Transmission Date: 20241017
  Serious: No
  Sender: SANOFI AVENTIS
  Company Number: US-SA-SAC20240327001056

PATIENT
  Sex: Female

DRUGS (1)
  1. DUPIXENT [Suspect]
     Active Substance: DUPILUMAB
     Indication: Dermatitis atopic
     Dosage: 300 MG QOW
     Route: 058

REACTIONS (5)
  - Peripheral swelling [Unknown]
  - Oedema [Unknown]
  - Rash erythematous [Recovering/Resolving]
  - Skin warm [Recovering/Resolving]
  - Rash [Recovered/Resolved]
